FAERS Safety Report 21474670 (Version 1)
Quarter: 2022Q4

REPORT INFORMATION
  Report Type: Spontaneous
  Country: US (occurrence: None)
  Receive Date: 20221018
  Receipt Date: 20221018
  Transmission Date: 20230113
  Serious: Yes (Hospitalization)
  Sender: FDA-Public Use
  Company Number: None

PATIENT
  Age: 18 Year
  Sex: Male
  Weight: 89.1 kg

DRUGS (7)
  1. CYCLOPHOSPHAMIDE [Suspect]
     Active Substance: CYCLOPHOSPHAMIDE
     Dates: start: 20220907, end: 20220907
  2. CYTARABINE [Suspect]
     Active Substance: CYTARABINE
     Dates: end: 20220917
  3. DAUNORUBICIN [Suspect]
     Active Substance: DAUNORUBICIN
     Dates: end: 20220726
  4. METHOTREXATE [Suspect]
     Active Substance: METHOTREXATE
     Dates: end: 20220831
  5. ONCASPAR [Suspect]
     Active Substance: PEGASPARGASE
     Dates: end: 20220922
  6. PREDNISONE [Suspect]
     Active Substance: PREDNISONE
     Dates: end: 20220801
  7. VINCRISTINE SULFATE [Suspect]
     Active Substance: VINCRISTINE SULFATE
     Dates: end: 20220922

REACTIONS (7)
  - Pyrexia [None]
  - Heart rate increased [None]
  - Blood pressure measurement [None]
  - Neutropenia [None]
  - General physical health deterioration [None]
  - Blood culture [None]
  - Escherichia test positive [None]

NARRATIVE: CASE EVENT DATE: 20220928
